FAERS Safety Report 20659064 (Version 1)
Quarter: 2022Q1

REPORT INFORMATION
  Report Type: Report from Study
  Country: NL (occurrence: NL)
  Receive Date: 20220331
  Receipt Date: 20220331
  Transmission Date: 20220424
  Serious: Yes (Disabling, Other)
  Sender: FDA-Public Use
  Company Number: NL-ROCHE-3047672

PATIENT
  Age: 71 Year
  Sex: Male
  Weight: 81 kg

DRUGS (2)
  1. BEVACIZUMAB [Suspect]
     Active Substance: BEVACIZUMAB
     Indication: Hepatocellular carcinoma
     Dosage: 15 MG/KG, 3X, WEEKLY
     Route: 042
     Dates: start: 20210226, end: 20211015
  2. TECENTRIQ [Suspect]
     Active Substance: ATEZOLIZUMAB
     Indication: Hepatocellular carcinoma
     Dosage: 1500 MG, 3X/WEEKLY
     Route: 041
     Dates: start: 20210126, end: 20211015

REACTIONS (2)
  - Atypical pneumonia [Recovered/Resolved]
  - Lung disorder [Recovered/Resolved]

NARRATIVE: CASE EVENT DATE: 20211001
